FAERS Safety Report 13352576 (Version 2)
Quarter: 2017Q1

REPORT INFORMATION
  Report Type: Report from Study
  Country: MX (occurrence: MX)
  Receive Date: 20170320
  Receipt Date: 20170323
  Transmission Date: 20170429
  Serious: Yes (Death, Hospitalization, Other)
  Sender: FDA-Public Use
  Company Number: PHHY2017MX042398

PATIENT
  Age: 76 Year
  Sex: Male

DRUGS (1)
  1. EXELON PATCH [Suspect]
     Active Substance: RIVASTIGMINE
     Indication: MEMORY IMPAIRMENT
     Dosage: 4.6 MG, QD PATCH 5 (CM2)
     Route: 062
     Dates: start: 201612, end: 20170304

REACTIONS (3)
  - Head injury [Fatal]
  - Fall [Recovered/Resolved]
  - Cerebral haematoma [Fatal]

NARRATIVE: CASE EVENT DATE: 20170304
